FAERS Safety Report 8373458-3 (Version None)
Quarter: 2012Q2

REPORT INFORMATION
  Report Type: 
  Country: None (occurrence: None)
  Receive Date: 20120521
  Receipt Date: 20120113
  Transmission Date: 20120825
  Serious: No
  Sender: FDA-Public Use
  Company Number: US-TEVA-317647USA

PATIENT
  Sex: Female

DRUGS (4)
  1. TREANDA [Suspect]
     Indication: CHRONIC LYMPHOCYTIC LEUKAEMIA
     Route: 042
     Dates: end: 20110301
  2. CETIRIZINE HYDROCHLORIDE [Concomitant]
     Indication: RASH PRURITIC
  3. NHYDRAMINE HYDROCHLORIDE [Concomitant]
     Indication: RASH PRURITIC
  4. METHYLPREDNISOLONE [Concomitant]
     Indication: RASH PRURITIC

REACTIONS (2)
  - URTICARIA [None]
  - RASH PRURITIC [None]
